FAERS Safety Report 23230851 (Version 1)
Quarter: 2023Q4

REPORT INFORMATION
  Report Type: Spontaneous
  Country: HU (occurrence: HU)
  Receive Date: 20231127
  Receipt Date: 20231127
  Transmission Date: 20240110
  Serious: Yes (Other)
  Sender: FDA-Public Use
  Company Number: HU-ASTELLAS-2023US034712

PATIENT
  Age: 74 Year
  Sex: Male

DRUGS (4)
  1. TAMSULOSIN HYDROCHLORIDE [Suspect]
     Active Substance: TAMSULOSIN HYDROCHLORIDE
     Indication: Product used for unknown indication
     Dosage: UNK UNK, UNKNOWN FREQ.
     Route: 065
     Dates: start: 2021
  2. ENZALUTAMIDE [Suspect]
     Active Substance: ENZALUTAMIDE
     Indication: Hormone-dependent prostate cancer
     Dosage: 160 MG, ONCE DAILY (4 X 40 MG)
     Route: 065
     Dates: start: 20210920
  3. D3 VITAMIN [Concomitant]
     Indication: Hormone-dependent prostate cancer
     Dosage: 3000 IU (1000), ONCE DAILY (REPORTED AS 3000NE)
     Route: 065
     Dates: start: 20210920
  4. LEUPROLIDE ACETATE [Concomitant]
     Active Substance: LEUPROLIDE ACETATE
     Indication: Hormone-dependent prostate cancer
     Dosage: 22.5 MG, EVERY 3 MONTHS
     Route: 065
     Dates: start: 20210920

REACTIONS (6)
  - Malignant neoplasm progression [Unknown]
  - Spinal compression fracture [Unknown]
  - Aortic thrombosis [Unknown]
  - Osteosclerosis [Unknown]
  - Inguinal hernia [Unknown]
  - Hypertension [Unknown]

NARRATIVE: CASE EVENT DATE: 20210805
